FAERS Safety Report 6377393-1 (Version None)
Quarter: 2009Q3

REPORT INFORMATION
  Report Type: 
  Country: None (occurrence: None)
  Receive Date: 20090923
  Receipt Date: 20090923
  Transmission Date: 20100115
  Serious: Yes (Life-Threatening, Hospitalization)
  Sender: FDA-Public Use
  Company Number: None

PATIENT
  Sex: Female

DRUGS (2)
  1. LITHIUM CARBONATE [Suspect]
     Indication: BIPOLAR DISORDER
     Dosage: 300MG PO QAM, 600MG PO QHS
     Route: 048
  2. LAMOTRIGINE [Concomitant]

REACTIONS (5)
  - BLOOD CREATININE INCREASED [None]
  - ENTEROCOLITIS INFECTIOUS [None]
  - GRAFT VERSUS HOST DISEASE [None]
  - LETHARGY [None]
  - THERAPEUTIC AGENT TOXICITY [None]
